FAERS Safety Report 5685203-0 (Version None)
Quarter: 2008Q1

REPORT INFORMATION
  Report Type: 
  Country: None (occurrence: None)
  Receive Date: 20080328
  Receipt Date: 20080318
  Transmission Date: 20080703
  Serious: Yes (Other)
  Sender: FDA-Public Use
  Company Number: JP-PFIZER INC-2007104188

PATIENT
  Sex: Male

DRUGS (7)
  1. LIPITOR [Suspect]
     Indication: HYPERLIPIDAEMIA
     Dosage: DAILY DOSE:5MG-FREQ:DAILY
     Route: 048
     Dates: start: 20021107, end: 20051006
  2. MELBIN [Interacting]
     Indication: DIABETES MELLITUS
     Dosage: DAILY DOSE:750MG-FREQ:DAILY
     Route: 048
     Dates: start: 19970101, end: 20051006
  3. ACTOS [Interacting]
     Indication: DIABETES MELLITUS
     Dosage: DAILY DOSE:30MG-FREQ:DAILY
     Route: 048
     Dates: start: 20050106, end: 20051006
  4. DAONIL [Concomitant]
     Indication: DIABETES MELLITUS
     Dosage: DAILY DOSE:5MG-FREQ:DAILY
     Route: 048
  5. GLUCOBAY [Concomitant]
     Indication: DIABETES MELLITUS
     Dosage: DAILY DOSE:300MG-FREQ:DAILY
     Route: 048
  6. TANATRIL ^ALGOL^ [Concomitant]
     Indication: HYPERTENSION
     Dosage: DAILY DOSE:10MG-FREQ:DAILY
     Route: 048
     Dates: start: 20050106, end: 20051006
  7. NORVASC [Concomitant]
     Indication: HYPERTENSION
     Dosage: DAILY DOSE:5MG-FREQ:DAILY
     Route: 048
     Dates: start: 20000302

REACTIONS (3)
  - DRUG INTERACTION [None]
  - RENAL TUBULAR DISORDER [None]
  - RHABDOMYOLYSIS [None]
